FAERS Safety Report 20862944 (Version 1)
Quarter: 2022Q2

REPORT INFORMATION
  Report Type: Spontaneous
  Country: JP (occurrence: JP)
  Receive Date: 20220523
  Receipt Date: 20220523
  Transmission Date: 20220720
  Serious: Yes (Other)
  Sender: FDA-Public Use
  Company Number: JP-ALLERGAN-2216435US

PATIENT
  Sex: Male

DRUGS (3)
  1. ASENAPINE MALEATE [Suspect]
     Active Substance: ASENAPINE MALEATE
     Indication: Drug dependence
     Dosage: 5 MG, QD
     Route: 060
  2. DONEPEZIL HYDROCHLORIDE [Suspect]
     Active Substance: DONEPEZIL HYDROCHLORIDE
     Indication: Drug dependence
     Dosage: 5 MG, QD
     Route: 048
  3. OLANZAPINE [Suspect]
     Active Substance: OLANZAPINE
     Indication: Drug dependence
     Dosage: 15 MG, QD
     Route: 048

REACTIONS (3)
  - Ileus paralytic [Recovering/Resolving]
  - Aggression [Recovering/Resolving]
  - Off label use [Unknown]
